FAERS Safety Report 8536002-3 (Version None)
Quarter: 2012Q3

REPORT INFORMATION
  Report Type: 
  Country: None (occurrence: None)
  Receive Date: 20120725
  Receipt Date: 20120724
  Transmission Date: 20120928
  Serious: Yes (Death, Other)
  Sender: FDA-Public Use
  Company Number: PHFR2012GB003417

PATIENT
  Sex: Male

DRUGS (1)
  1. CLOZARIL [Suspect]
     Indication: SCHIZOPHRENIA
     Dosage: 700 MG, DAILY
     Route: 048
     Dates: start: 20030328

REACTIONS (4)
  - WHITE BLOOD CELL COUNT INCREASED [None]
  - DEATH [None]
  - CARDIAC DISORDER [None]
  - NEUTROPHIL COUNT INCREASED [None]
